FAERS Safety Report 11758941 (Version 1)
Quarter: 2015Q4

REPORT INFORMATION
  Report Type: Spontaneous
  Country: RU (occurrence: RU)
  Receive Date: 20151120
  Receipt Date: 20151120
  Transmission Date: 20160304
  Serious: Yes (Other)
  Sender: FDA-Public Use
  Company Number: RU-BAYER-2015-379778

PATIENT
  Age: 25 Year
  Sex: Female
  Weight: 67 kg

DRUGS (1)
  1. MIRENA [Suspect]
     Active Substance: LEVONORGESTREL
     Indication: CONTRACEPTION
     Dosage: 20 MCG/24HR, CONT
     Route: 015
     Dates: start: 2012, end: 20141227

REACTIONS (9)
  - Pregnancy with contraceptive device [None]
  - Device expulsion [Recovered/Resolved]
  - Herpes simplex [None]
  - Amniorrhoea [None]
  - Drug ineffective [None]
  - Cytomegalovirus infection [None]
  - Uterine leiomyoma [None]
  - Ectropion of cervix [None]
  - Vaginal infection [None]

NARRATIVE: CASE EVENT DATE: 2014
